FAERS Safety Report 4724550-3 (Version None)
Quarter: 2005Q3

REPORT INFORMATION
  Report Type: 
  Country: None (occurrence: None)
  Receive Date: 20050719
  Receipt Date: 20050719
  Transmission Date: 20060218
  Serious: Yes (Hospitalization)
  Sender: FDA-Public Use
  Company Number: None

PATIENT
  Age: 44 Year
  Sex: Male
  Weight: 92.9874 kg

DRUGS (9)
  1. PERCOCET [Suspect]
     Indication: BACK PAIN
     Dosage: BID, ORAL
     Route: 048
  2. DILAUDID [Suspect]
     Dosage: TID, ORAL
     Route: 048
  3. CLONAZEPAM [Concomitant]
  4. METOPROLOL [Concomitant]
  5. PROMETHAZINE [Concomitant]
  6. SIMVASTATIN [Concomitant]
  7. ESCITALOPRAM OXALATE [Concomitant]
  8. TAMSULOSIN [Concomitant]
  9. LEVOTHYROXINE [Concomitant]

REACTIONS (3)
  - DRUG TOXICITY [None]
  - HYPERHIDROSIS [None]
  - LETHARGY [None]
